FAERS Safety Report 12725846 (Version 1)
Quarter: 2016Q3

REPORT INFORMATION
  Report Type: Spontaneous
  Country: US (occurrence: US)
  Receive Date: 20160908
  Receipt Date: 20160908
  Transmission Date: 20161109
  Serious: No
  Sender: FDA-Public Use
  Company Number: US-TEVA-678783USA

PATIENT
  Age: 75 Year
  Sex: Female
  Weight: 71.73 kg

DRUGS (1)
  1. QNASL [Suspect]
     Active Substance: BECLOMETHASONE DIPROPIONATE
     Indication: HYPERSENSITIVITY
     Dosage: 1 PUFF IN EACH NOSTRIL OD, EVERY OTHER DAY
     Dates: start: 201605, end: 20160708

REACTIONS (4)
  - Inappropriate schedule of drug administration [Unknown]
  - Scab [Unknown]
  - Nasal mucosal disorder [Unknown]
  - Nasal discomfort [Unknown]

NARRATIVE: CASE EVENT DATE: 20160701
